FAERS Safety Report 9536229 (Version 1)
Quarter: 2013Q3

REPORT INFORMATION
  Report Type: Spontaneous
  Country: US (occurrence: None)
  Receive Date: 20130917
  Receipt Date: 20130917
  Transmission Date: 20140515
  Serious: Yes (Other)
  Sender: FDA-Public Use
  Company Number: None

PATIENT
  Age: 67 Year
  Sex: Female
  Weight: 79.38 kg

DRUGS (7)
  1. LOSTARTAN HCTZ [Suspect]
     Indication: BLOOD PRESSURE
     Dosage: 100-125 MG 1 TABLET 1 DAY, MOUTH
     Route: 048
     Dates: start: 20130614, end: 20130714
  2. METFORMIN [Concomitant]
  3. MULTIVITAMIN [Concomitant]
  4. FISH OIL [Concomitant]
  5. B COMPLEX [Concomitant]
  6. POTASSIUM MAGNESIUM [Concomitant]
  7. CALCIUM [Concomitant]

REACTIONS (2)
  - Pruritus genital [None]
  - Sinus congestion [None]
